FAERS Safety Report 19186136 (Version 7)
Quarter: 2022Q4

REPORT INFORMATION
  Report Type: Spontaneous
  Country: US (occurrence: US)
  Receive Date: 20210427
  Receipt Date: 20221221
  Transmission Date: 20230113
  Serious: Yes (Death, Hospitalization)
  Sender: FDA-Public Use
  Company Number: US-PARI RESPIRATORY EQUIPMENT, INC.-2021PAR00025

PATIENT
  Age: 27 Year
  Sex: Male

DRUGS (3)
  1. KITABIS PAK [Suspect]
     Active Substance: TOBRAMYCIN
     Indication: Tracheitis
     Dosage: 300/5 MG/ML (1 AMPULE) VIA NEBULIZER, 2X/DAY FOR 28 DAYS ON, THEN 28 DAYS OFF
     Dates: start: 20200804, end: 20220227
  2. KITABIS PAK [Suspect]
     Active Substance: TOBRAMYCIN
     Indication: Epilepsy
  3. EPIDIOLEX [Concomitant]
     Active Substance: CANNABIDIOL
     Dosage: 5.9 ML VIA GASTROSTOMY TUBE, 2X/DAY

REACTIONS (4)
  - Death [Fatal]
  - Pneumonia [Unknown]
  - Hospitalisation [Recovered/Resolved]
  - Off label use [Recovered/Resolved]

NARRATIVE: CASE EVENT DATE: 20200801
